FAERS Safety Report 6641313-2 (Version None)
Quarter: 2010Q1

REPORT INFORMATION
  Report Type: 
  Country: None (occurrence: None)
  Receive Date: 20100303
  Receipt Date: 20090706
  Transmission Date: 20100710
  Serious: Yes (Hospitalization)
  Sender: FDA-Public Use
  Company Number: 289038

PATIENT
  Age: 51 Year
  Sex: Male

DRUGS (1)
  1. NOVOLIN 70/30  (INSULIN HUMAN) [Suspect]
     Indication: DIABETES MELLITUS
     Dosage: SUBCUTANEOUS
     Route: 058

REACTIONS (1)
  - DIABETIC KETOACIDOSIS [None]
